FAERS Safety Report 7159856-4 (Version None)
Quarter: 2010Q4

REPORT INFORMATION
  Report Type: 
  Country: None (occurrence: None)
  Receive Date: 20101214
  Receipt Date: 20100211
  Transmission Date: 20110411
  Serious: No
  Sender: FDA-Public Use
  Company Number: US-ASTRAZENECA-2010SE06182

PATIENT
  Sex: Male

DRUGS (2)
  1. CRESTOR [Suspect]
     Route: 048
     Dates: start: 20100130, end: 20100210
  2. DOXYCYCLINE HYCLATE [Concomitant]
     Indication: SINUSITIS

REACTIONS (2)
  - HEADACHE [None]
  - HYPOAESTHESIA [None]
